FAERS Safety Report 11203001 (Version 4)
Quarter: 2016Q2

REPORT INFORMATION
  Report Type: Report from Study
  Country: AR (occurrence: AR)
  Receive Date: 20150619
  Receipt Date: 20160509
  Transmission Date: 20160815
  Serious: Yes (Other)
  Sender: FDA-Public Use
  Company Number: AR-GLAXOSMITHKLINE-AR2015GSK071748

PATIENT
  Age: 37 Year
  Sex: Female

DRUGS (4)
  1. GLUCOCORTICOIDS [Concomitant]
     Active Substance: UNSPECIFIED INGREDIENT
     Indication: SYSTEMIC LUPUS ERYTHEMATOSUS
     Dosage: 816 UNK, UNK
     Route: 065
  2. HYDROXYCHLOROQUINE [Concomitant]
     Active Substance: HYDROXYCHLOROQUINE
     Indication: SYSTEMIC LUPUS ERYTHEMATOSUS
     Dosage: 400 UNK, UNK
  3. BELIMUMAB [Suspect]
     Active Substance: BELIMUMAB
     Indication: SYSTEMIC LUPUS ERYTHEMATOSUS
     Dosage: UNK
     Route: 065
  4. METHOTREXATE [Concomitant]
     Active Substance: METHOTREXATE
     Indication: PRODUCT USED FOR UNKNOWN INDICATION
     Dosage: MAXIMUM DOSES
     Route: 065

REACTIONS (8)
  - Ulcer [Not Recovered/Not Resolved]
  - Systemic lupus erythematosus [Unknown]
  - Condition aggravated [Not Recovered/Not Resolved]
  - Skin disorder [Unknown]
  - Fungal infection [Not Recovered/Not Resolved]
  - Drug administration error [Unknown]
  - Leukopenia [Unknown]
  - Stomatitis [Unknown]
